FAERS Safety Report 11533348 (Version 1)
Quarter: 2015Q3

REPORT INFORMATION
  Report Type: Spontaneous
  Country: US (occurrence: US)
  Receive Date: 20150921
  Receipt Date: 20150921
  Transmission Date: 20151125
  Serious: No
  Sender: FDA-Public Use
  Company Number: US-ALLERGAN-1502525US

PATIENT
  Age: 61 Year
  Sex: Female
  Weight: 53.52 kg

DRUGS (3)
  1. LASTACAFT [Suspect]
     Active Substance: ALCAFTADINE
     Dosage: 1 GTT, QD
     Route: 047
     Dates: start: 201405, end: 201408
  2. LASTACAFT [Suspect]
     Active Substance: ALCAFTADINE
     Indication: HYPERSENSITIVITY
     Dosage: 1 GTT, QD
     Route: 047
     Dates: start: 201501, end: 201502
  3. RESTASIS [Concomitant]
     Active Substance: CYCLOSPORINE

REACTIONS (1)
  - Scleral hyperaemia [Recovering/Resolving]

NARRATIVE: CASE EVENT DATE: 201501
